FAERS Safety Report 24656841 (Version 2)
Quarter: 2024Q4

REPORT INFORMATION
  Report Type: Report from Study
  Country: US (occurrence: US)
  Receive Date: 20241125
  Receipt Date: 20241204
  Transmission Date: 20250115
  Serious: No
  Sender: ROCHE
  Company Number: US-ROCHE-10000139184

PATIENT
  Age: 63 Year
  Sex: Female
  Weight: 77.11 kg

DRUGS (8)
  1. OCREVUS [Suspect]
     Active Substance: OCRELIZUMAB
     Indication: Relapsing-remitting multiple sclerosis
     Dosage: 300 MG/10 ML, 3 REFILLS
     Route: 042
     Dates: start: 20221209, end: 20221228
  2. OCREVUS [Suspect]
     Active Substance: OCRELIZUMAB
     Route: 042
     Dates: start: 20230602
  3. BUSPIRONE [Concomitant]
     Active Substance: BUSPIRONE HYDROCHLORIDE
     Indication: Anxiety
     Dosage: STARTED ABOUT 2 YEARS AGO.
     Route: 048
     Dates: start: 20220816
  4. LISINOPRIL [Concomitant]
     Active Substance: LISINOPRIL
     Indication: Hypertension
     Dosage: STARTED ABOUT 4 YEARS AGO.
     Route: 048
  5. MELOXICAM [Concomitant]
     Active Substance: MELOXICAM
     Dosage: STARTED 2 YEARS AGP.
     Route: 048
  6. BACLOFEN [Concomitant]
     Active Substance: BACLOFEN
     Indication: Muscle spasms
     Dosage: STARTED BEFORE SHE STARTED OCREVUS US. TAKES AS NEEDED.
     Route: 048
  7. LORAZEPAM [Concomitant]
     Active Substance: LORAZEPAM
     Indication: Anxiety
     Dosage: 1 TABLET EVERY 6 HOURS PRN
     Route: 048
     Dates: start: 20220912
  8. METHYL PREDNISOLONE SODIUM SUCC 1000 MG [Concomitant]
     Dosage: 1000 MG IV DAILY FOR 5 DAYS. EACH DOSE INFUSE OVER 90 MINUTES.
     Route: 042
     Dates: start: 20220912

REACTIONS (5)
  - Gait disturbance [Not Recovered/Not Resolved]
  - Meniscus injury [Not Recovered/Not Resolved]
  - COVID-19 [Recovered/Resolved]
  - Fall [Unknown]
  - Pain [Not Recovered/Not Resolved]

NARRATIVE: CASE EVENT DATE: 20240101
